FAERS Safety Report 12195884 (Version 2)
Quarter: 2016Q2

REPORT INFORMATION
  Report Type: Spontaneous
  Country: US (occurrence: US)
  Receive Date: 20160321
  Receipt Date: 20160405
  Transmission Date: 20160815
  Serious: No
  Sender: FDA-Public Use
  Company Number: US-PFIZER INC-2016166615

PATIENT
  Age: 3 Year
  Sex: Male

DRUGS (2)
  1. QUILLIVANT XR [Suspect]
     Active Substance: METHYLPHENIDATE HYDROCHLORIDE
     Indication: ATTENTION DEFICIT/HYPERACTIVITY DISORDER
     Dosage: 5 ML, 1X/DAY, IN THE MORNING
     Route: 048
  2. QUILLIVANT XR [Suspect]
     Active Substance: METHYLPHENIDATE HYDROCHLORIDE
     Dosage: 2.5 ML, 1X/DAY, IN THE MORNING
     Route: 048
     Dates: start: 2015

REACTIONS (4)
  - Product use issue [Not Recovered/Not Resolved]
  - Abnormal behaviour [Recovered/Resolved]
  - Drug intolerance [Recovered/Resolved]
  - Mood swings [Not Recovered/Not Resolved]
